FAERS Safety Report 9470627 (Version 5)
Quarter: 2013Q4

REPORT INFORMATION
  Report Type: Spontaneous
  Country: US (occurrence: US)
  Receive Date: 20130822
  Receipt Date: 20131029
  Transmission Date: 20140711
  Serious: Yes (Other)
  Sender: FDA-Public Use
  Company Number: US-PFIZER INC-2013242883

PATIENT
  Age: 48 Year
  Sex: Male
  Weight: 61.22 kg

DRUGS (3)
  1. LYRICA [Suspect]
     Indication: DIABETIC NEUROPATHY
     Dosage: 50 MG, 2X/DAY
     Dates: start: 2008
  2. LYRICA [Suspect]
     Indication: SCIATICA
  3. LYRICA [Suspect]
     Indication: NEURALGIA

REACTIONS (9)
  - Cardiac septal defect [Unknown]
  - Sciatic nerve injury [Unknown]
  - Aortic disorder [Unknown]
  - Back disorder [Unknown]
  - Pain [Unknown]
  - Anxiety [Unknown]
  - Weight decreased [Unknown]
  - Insomnia [Unknown]
  - Hypoaesthesia [Unknown]
